FAERS Safety Report 4444332-X (Version None)
Quarter: 2004Q3

REPORT INFORMATION
  Report Type: 
  Country: None (occurrence: None)
  Receive Date: 20040729
  Receipt Date: 20030903
  Transmission Date: 20050211
  Serious: Yes (Other)
  Sender: FDA-Public Use
  Company Number: HQWYE511705SEP03

PATIENT
  Age: 20 Year
  Sex: Female
  Weight: 63.56 kg

DRUGS (1)
  1. MINOCIN [Suspect]
     Indication: ACNE
     Dosage: ORAL
     Route: 048
     Dates: start: 20020901

REACTIONS (1)
  - LUPUS-LIKE SYNDROME [None]
